FAERS Safety Report 4761322-8 (Version None)
Quarter: 2005Q3

REPORT INFORMATION
  Report Type: 
  Country: None (occurrence: None)
  Receive Date: 20050901
  Receipt Date: 20050901
  Transmission Date: 20060218
  Serious: Yes (Hospitalization)
  Sender: FDA-Public Use
  Company Number: None

PATIENT
  Age: 70 Year
  Sex: Female

DRUGS (7)
  1. DILTIAZEM [Suspect]
     Indication: HYPERTENSION
  2. ROSIGLITAZONE -AVANDIA(R)- [Concomitant]
  3. BENAZEPRIL -LOTENSIN(R)- [Concomitant]
  4. ATENOLOL -TENORMIN(R)- [Concomitant]
  5. AMLODIPINE -NORVASC(R)- [Concomitant]
  6. HYDROCHLOROTHIAZIDE -AQUAZIDE(R)- [Concomitant]
  7. DILTIAZEM -CARDIZEM(R)- [Concomitant]

REACTIONS (5)
  - ASTHENIA [None]
  - ATRIOVENTRICULAR BLOCK [None]
  - BLOOD PRESSURE SYSTOLIC DECREASED [None]
  - FATIGUE [None]
  - NODAL ARRHYTHMIA [None]
